FAERS Safety Report 5091968-1 (Version None)
Quarter: 2006Q3

REPORT INFORMATION
  Report Type: 
  Country: None (occurrence: None)
  Receive Date: 20060824
  Receipt Date: 20060810
  Transmission Date: 20061208
  Serious: Yes (Hospitalization)
  Sender: FDA-Public Use
  Company Number: 2006-146911-NL

PATIENT
  Age: 80 Year
  Sex: Female

DRUGS (9)
  1. MIRTAZAPINE [Suspect]
     Dosage: 45 MG; ORAL
     Route: 048
  2. ALENDRONIC ACID [Suspect]
     Dosage: 300 MG; WEEKLY; ORAL
     Route: 048
  3. BECLOMETHASONE DIPROPIONATE [Concomitant]
  4. CALCICHEW D3 [Concomitant]
  5. LACTULOSE [Concomitant]
  6. LITHIUM [Concomitant]
  7. OLANZAPINE [Concomitant]
  8. PARACETAMOL [Concomitant]
  9. ALBUTEROL SPIROS [Concomitant]

REACTIONS (1)
  - DUODENAL ULCER [None]
